FAERS Safety Report 16791373 (Version 1)
Quarter: 2019Q3

REPORT INFORMATION
  Report Type: Spontaneous
  Country: US (occurrence: US)
  Receive Date: 20190910
  Receipt Date: 20190910
  Transmission Date: 20191005
  Serious: No
  Sender: FDA-Public Use
  Company Number: US-GALDERMA-US19002150

PATIENT
  Sex: Female

DRUGS (2)
  1. VALIUM [Concomitant]
     Active Substance: DIAZEPAM
  2. CLOBEX [Suspect]
     Active Substance: CLOBETASOL PROPIONATE
     Indication: PRODUCT USED FOR UNKNOWN INDICATION
     Dosage: 0.05%
     Route: 061
     Dates: start: 2018, end: 201901

REACTIONS (1)
  - Expired product administered [Recovered/Resolved]

NARRATIVE: CASE EVENT DATE: 2018
